FAERS Safety Report 19429971 (Version 1)
Quarter: 2021Q2

REPORT INFORMATION
  Report Type: Spontaneous
  Country: US (occurrence: US)
  Receive Date: 20210617
  Receipt Date: 20210617
  Transmission Date: 20210717
  Serious: No
  Sender: FDA-Public Use
  Company Number: US-KYOWAKIRIN-2021BKK009770

PATIENT

DRUGS (1)
  1. CRYSVITA [Suspect]
     Active Substance: BUROSUMAB-TWZA
     Indication: ALBRIGHT^S DISEASE
     Dosage: 20 MG (1.1 MG/KG), BIWEEKLY
     Route: 058

REACTIONS (1)
  - Drug effective for unapproved indication [Unknown]
